FAERS Safety Report 10960523 (Version 2)
Quarter: 2015Q2

REPORT INFORMATION
  Report Type: Report from Study
  Country: JP (occurrence: JP)
  Receive Date: 20150327
  Receipt Date: 20150428
  Transmission Date: 20150821
  Serious: Yes (Life-Threatening, Hospitalization, Other)
  Sender: FDA-Public Use
  Company Number: JP-SA-2015SA036284

PATIENT
  Age: 21 Year
  Sex: Male
  Weight: 88.2 kg

DRUGS (6)
  1. FLUDARA [Concomitant]
     Active Substance: FLUDARABINE PHOSPHATE
     Dates: start: 20120509, end: 20120514
  2. THYMOGLOBULINE [Suspect]
     Active Substance: LAPINE T-LYMPHOCYTE IMMUNE GLOBULIN
     Indication: BONE MARROW CONDITIONING REGIMEN
     Route: 041
     Dates: start: 20120515, end: 20120516
  3. SOLU-MEDROL [Suspect]
     Active Substance: METHYLPREDNISOLONE SODIUM SUCCINATE
     Indication: GRAFT VERSUS HOST DISEASE
     Route: 065
     Dates: start: 20120517, end: 20120619
  4. CYLOCIDE [Concomitant]
     Active Substance: CYTARABINE
     Dates: start: 20120509, end: 20120512
  5. PROGRAF [Suspect]
     Active Substance: TACROLIMUS\TACROLIMUS ANHYDROUS
     Indication: GRAFT VERSUS HOST DISEASE
     Route: 065
     Dates: start: 20120515, end: 20120806
  6. ALKERAN [Concomitant]
     Active Substance: MELPHALAN
     Dates: start: 20120513, end: 20120514

REACTIONS (6)
  - Oral herpes [Recovered/Resolved]
  - Cystitis haemorrhagic [Recovered/Resolved]
  - Cytomegalovirus viraemia [Recovered/Resolved]
  - Thrombotic microangiopathy [Recovered/Resolved]
  - Febrile neutropenia [Recovered/Resolved]
  - Acute graft versus host disease [Recovered/Resolved]

NARRATIVE: CASE EVENT DATE: 20120520
